FAERS Safety Report 4604890-9 (Version None)
Quarter: 2005Q1

REPORT INFORMATION
  Report Type: 
  Country: None (occurrence: None)
  Receive Date: 20050309
  Receipt Date: 20050309
  Transmission Date: 20050727
  Serious: Yes (Hospitalization)
  Sender: FDA-Public Use
  Company Number: None

PATIENT
  Age: 69 Year
  Sex: Male
  Weight: 71.2147 kg

DRUGS (1)
  1. TAXOL [Suspect]
     Indication: OESOPHAGEAL CARCINOMA
     Dosage: 115 MG OVER 96 HOURS PUMP SET @ RATE OF 4 ML PER HR DAILY VOLUME 96 ML PER DAY.  DAILY DOSE 28.7 MG
     Dates: start: 20050304

REACTIONS (12)
  - DEHYDRATION [None]
  - DIARRHOEA [None]
  - DRY THROAT [None]
  - HEART RATE DECREASED [None]
  - HYPOKALAEMIA [None]
  - HYPOMAGNESAEMIA [None]
  - OXYGEN SATURATION DECREASED [None]
  - PHARYNGOLARYNGEAL PAIN [None]
  - PRODUCTIVE COUGH [None]
  - PYREXIA [None]
  - VOMITING [None]
  - WEIGHT DECREASED [None]
